FAERS Safety Report 8911543 (Version 1)
Quarter: 2012Q4

REPORT INFORMATION
  Report Type: 
  Country: JP (occurrence: JP)
  Receive Date: 20121116
  Receipt Date: 20121116
  Transmission Date: 20130627
  Serious: Yes (Other)
  Sender: FDA-Public Use
  Company Number: JP-TEVA-369205ISR

PATIENT
  Age: 2 Year
  Sex: Male

DRUGS (6)
  1. PREDNISOLONE [Suspect]
     Indication: GRAFT VERSUS HOST DISEASE
     Dosage: 2 mg/kg/day
     Route: 065
  2. METHOTREXATE [Suspect]
     Indication: PROPHYLAXIS AGAINST GRAFT VERSUS HOST DISEASE
     Dosage: Short-term
     Route: 065
  3. METHOTREXATE [Suspect]
     Indication: GRAFT VERSUS HOST DISEASE
     Dosage: Additional; 10 mg/m2 on days 28, 31, 35. 42 and 51
     Route: 065
  4. TACROLIMUS [Concomitant]
     Indication: PROPHYLAXIS AGAINST GRAFT VERSUS HOST DISEASE
  5. CIDOFOVIR [Concomitant]
     Indication: ADENOVIRUS INFECTION
     Route: 042
  6. PROBENECID [Concomitant]
     Indication: ADENOVIRUS INFECTION
     Route: 065

REACTIONS (5)
  - Lymphopenia [Recovered/Resolved]
  - Encephalitis [Not Recovered/Not Resolved]
  - Adenovirus infection [Recovered/Resolved]
  - Renal failure [Not Recovered/Not Resolved]
  - Neurological symptom [Not Recovered/Not Resolved]
